FAERS Safety Report 18050212 (Version 1)
Quarter: 2020Q3

REPORT INFORMATION
  Report Type: Report from Study
  Country: JP (occurrence: JP)
  Receive Date: 20200721
  Receipt Date: 20200721
  Transmission Date: 20201103
  Serious: Yes (Hospitalization, Other)
  Sender: FDA-Public Use
  Company Number: JP-AMGEN-JPNSP2019144664

PATIENT
  Age: 8 Decade
  Sex: Female

DRUGS (11)
  1. NEORAL [Concomitant]
     Active Substance: CYCLOSPORINE
     Indication: APLASTIC ANAEMIA
     Dosage: UNK
     Route: 048
  2. ROMIPLOSTIM [Suspect]
     Active Substance: ROMIPLOSTIM
     Dosage: 20 MICROGRAM, QWK
     Route: 058
  3. CICLOSPORIN [Suspect]
     Active Substance: CYCLOSPORINE
     Indication: APLASTIC ANAEMIA
     Dosage: UNK
     Route: 048
  4. ROMIPLOSTIM [Suspect]
     Active Substance: ROMIPLOSTIM
     Indication: APLASTIC ANAEMIA
     Dosage: 10 MICROGRAM, QWK
     Route: 058
  5. ROMIPLOSTIM [Suspect]
     Active Substance: ROMIPLOSTIM
     Dosage: 18 MICROGRAM, QWK
     Route: 058
  6. NEORAL [Concomitant]
     Active Substance: CYCLOSPORINE
     Dosage: UNK
     Route: 048
  7. DANAZOL. [Concomitant]
     Active Substance: DANAZOL
     Indication: APLASTIC ANAEMIA
     Dosage: UNK
     Route: 048
  8. ROMIPLOSTIM [Suspect]
     Active Substance: ROMIPLOSTIM
     Dosage: 15 MICROGRAM, QWK
     Route: 058
  9. ROMIPLOSTIM [Suspect]
     Active Substance: ROMIPLOSTIM
     Dosage: 10 MICROGRAM, QWK
     Route: 058
  10. ROMIPLOSTIM [Suspect]
     Active Substance: ROMIPLOSTIM
     Dosage: 15 MICROGRAM, QWK
     Route: 058
  11. DANAZOL. [Concomitant]
     Active Substance: DANAZOL
     Dosage: UNK
     Route: 048

REACTIONS (5)
  - Hepatic function abnormal [Unknown]
  - Renal impairment [Unknown]
  - Inappropriate schedule of product administration [Unknown]
  - Iron overload [Unknown]
  - Back pain [Recovered/Resolved]
